FAERS Safety Report 8881838 (Version 1)
Quarter: 2012Q4

REPORT INFORMATION
  Report Type: 
  Country: US (occurrence: US)
  Receive Date: 20121101
  Receipt Date: 20121101
  Transmission Date: 20130627
  Serious: No
  Sender: FDA-Public Use
  Company Number: US-PFIZER INC-2012269234

PATIENT
  Age: 65 Year
  Sex: Female
  Weight: 61 kg

DRUGS (7)
  1. ALAVERT [Suspect]
     Indication: COLD
     Dosage: 5/120 mg, two times in a day
     Route: 048
     Dates: start: 20121023
  2. ALAVERT [Suspect]
     Indication: SINUSITIS
  3. ALAVERT [Suspect]
     Indication: SORE THROAT
  4. VITAMINS WITH MINERALS [Suspect]
     Indication: COLD
     Dosage: UNK, two times in a day
     Route: 048
     Dates: start: 20121016, end: 20121019
  5. VITAMINS WITH MINERALS [Suspect]
     Indication: SINUSITIS
  6. VITAMINS WITH MINERALS [Suspect]
     Indication: SORE THROAT
  7. VITAMINS WITH MINERALS [Concomitant]
     Indication: RINGING IN EARS
     Dosage: UNK
     Dates: start: 2011

REACTIONS (5)
  - Expired drug administered [Unknown]
  - Malaise [Unknown]
  - Thirst [Unknown]
  - Nightmare [Unknown]
  - Middle insomnia [Unknown]
